FAERS Safety Report 5531533-2 (Version None)
Quarter: 2007Q4

REPORT INFORMATION
  Report Type: 
  Country: None (occurrence: None)
  Receive Date: 20071128
  Receipt Date: 20071128
  Transmission Date: 20080405
  Serious: No
  Sender: FDA-Public Use
  Company Number: None

PATIENT
  Age: 42 Year
  Sex: Female

DRUGS (1)
  1. CHANTIX [Suspect]
     Dates: start: 20071024, end: 20071112

REACTIONS (2)
  - SOMNOLENCE [None]
  - VISUAL DISTURBANCE [None]
